FAERS Safety Report 4876102-2 (Version None)
Quarter: 2006Q1

REPORT INFORMATION
  Report Type: 
  Country: None (occurrence: None)
  Receive Date: 20060106
  Receipt Date: 20060106
  Transmission Date: 20060701
  Serious: No
  Sender: FDA-Public Use
  Company Number: None

PATIENT
  Age: 44 Year
  Sex: Female
  Weight: 65.7716 kg

DRUGS (2)
  1. ZYMAR [Suspect]
     Indication: KERATITIS
     Dosage: 1 GTT OU  Q2 HOUR - QID  OPHTHALMIC
     Route: 047
     Dates: start: 20061122, end: 20061128
  2. ZYMAR [Suspect]
     Indication: KERATITIS
     Dosage: 1 GTT OU  Q2 HOUR - QID  OPHTHALMIC
     Route: 047
     Dates: start: 20061214, end: 20061216

REACTIONS (8)
  - CONJUNCTIVITIS [None]
  - DISEASE RECURRENCE [None]
  - DRY EYE [None]
  - GLARE [None]
  - KERATOPATHY [None]
  - OPHTHALMOLOGICAL EXAMINATION ABNORMAL [None]
  - VISION BLURRED [None]
  - VISUAL ACUITY REDUCED [None]
